FAERS Safety Report 13554404 (Version 1)
Quarter: 2017Q2

REPORT INFORMATION
  Report Type: Spontaneous
  Country: US (occurrence: US)
  Receive Date: 20170517
  Receipt Date: 20170517
  Transmission Date: 20170830
  Serious: Yes (Life-Threatening, Disabling)
  Sender: FDA-Public Use
  Company Number: US-ASTRAZENECA-2017SE50716

PATIENT
  Age: 49 Year
  Sex: Female
  Weight: 127 kg

DRUGS (13)
  1. MULTIVITAMIN [Concomitant]
     Active Substance: VITAMINS
  2. LYRICA [Concomitant]
     Active Substance: PREGABALIN
     Indication: PAIN
  3. LYRICA [Concomitant]
     Active Substance: PREGABALIN
     Indication: NERVE INJURY
  4. ASPIRIN. [Concomitant]
     Active Substance: ASPIRIN
  5. VITAMIN D3 [Concomitant]
     Active Substance: CHOLECALCIFEROL
  6. POTASSIUM [Concomitant]
     Active Substance: POTASSIUM
  7. IRON [Concomitant]
     Active Substance: IRON
  8. BUPROPION. [Concomitant]
     Active Substance: BUPROPION
     Indication: DEPRESSION
  9. OMEPRAZOLE. [Suspect]
     Active Substance: OMEPRAZOLE
     Indication: GASTROOESOPHAGEAL REFLUX DISEASE
     Route: 048
  10. LYRICA [Concomitant]
     Active Substance: PREGABALIN
     Indication: PAIN
  11. METOPROLOL. [Suspect]
     Active Substance: METOPROLOL
     Indication: MYOCARDIAL INFARCTION
     Route: 048
     Dates: start: 201208
  12. CRESTOR [Suspect]
     Active Substance: ROSUVASTATIN CALCIUM
     Indication: CARDIAC DISORDER
     Route: 048
     Dates: start: 201209, end: 20170505
  13. LYRICA [Concomitant]
     Active Substance: PREGABALIN
     Indication: NERVE INJURY

REACTIONS (7)
  - Myocardial infarction [Unknown]
  - Fall [Unknown]
  - Drug dose omission [Unknown]
  - Depression [Unknown]
  - Gastrooesophageal reflux disease [Unknown]
  - Meniscus injury [Unknown]
  - Carpal tunnel syndrome [Unknown]

NARRATIVE: CASE EVENT DATE: 2011
